FAERS Safety Report 17084111 (Version 2)
Quarter: 2019Q4

REPORT INFORMATION
  Report Type: Spontaneous
  Country: DE (occurrence: DE)
  Receive Date: 20191127
  Receipt Date: 20191202
  Transmission Date: 20200122
  Serious: Yes (Hospitalization)
  Sender: FDA-Public Use
  Company Number: DE-MYLANLABS-2019M1115475

PATIENT
  Age: 76 Year
  Sex: Male
  Weight: 98 kg

DRUGS (7)
  1. THYRONAJOD [Concomitant]
     Active Substance: LEVOTHYROXINE SODIUM\POTASSIUM IODIDE
     Dosage: 75 ?G, 1-0-0-0, TABLETTEN
     Route: 048
  2. BISOPROLOL [Suspect]
     Active Substance: BISOPROLOL
     Indication: PRODUCT USED FOR UNKNOWN INDICATION
     Dosage: 2.5 MG, 1-0-0-0, TABLETTEN
     Route: 048
  3. ASPIRIN. [Concomitant]
     Active Substance: ASPIRIN
     Dosage: 100 MG, 1-0-0-0, TABLETTEN
     Route: 048
  4. NOVAMINSULFON 1 A PHARMA [Concomitant]
     Active Substance: METAMIZOLE SODIUM
     Dosage: BEDARF, TROPFEN
     Route: 048
  5. HCT BETA [Concomitant]
     Active Substance: HYDROCHLOROTHIAZIDE
     Dosage: 25 MG, 1-0-0-0, TABLETTEN
     Route: 048
  6. TAMSULOSIN HEXAL [Concomitant]
     Active Substance: TAMSULOSIN HYDROCHLORIDE
     Dosage: 0.4 MG, 0-0-1-0, RETARD-TABLETTEN
     Route: 048
  7. ALLOBETA [Concomitant]
     Dosage: 300 MG, 0-1-0-0, TABLETTEN
     Route: 048

REACTIONS (4)
  - Hypertension [Unknown]
  - Angina pectoris [Unknown]
  - Restlessness [Unknown]
  - Bradycardia [Unknown]
